FAERS Safety Report 7291067-4 (Version None)
Quarter: 2011Q1

REPORT INFORMATION
  Report Type: 
  Country: None (occurrence: None)
  Receive Date: 20110214
  Receipt Date: 20110131
  Transmission Date: 20110831
  Serious: Yes (Hospitalization, Other)
  Sender: FDA-Public Use
  Company Number: US-CELGENEUS-163-21880-10111199

PATIENT
  Sex: Male
  Weight: 77.202 kg

DRUGS (26)
  1. REVLIMID [Suspect]
     Indication: MULTIPLE MYELOMA
     Route: 048
     Dates: start: 20100901
  2. METOPROLOL [Concomitant]
     Route: 065
  3. COMPAZINE [Concomitant]
     Route: 065
  4. NEURONTIN [Concomitant]
     Indication: HERPES ZOSTER
     Route: 048
  5. ASPIRIN [Concomitant]
     Route: 048
  6. MULTI-VITAMINS [Concomitant]
     Route: 048
  7. DEXAMETHASONE [Concomitant]
     Route: 065
  8. REVLIMID [Suspect]
     Route: 048
     Dates: start: 20101101
  9. TOPROL-XL [Concomitant]
     Route: 048
  10. ACYCLOVIR [Concomitant]
     Indication: ANTIVIRAL PROPHYLAXIS
     Route: 048
  11. SIMVASTATIN [Concomitant]
     Route: 048
  12. ZOSTRIX [Concomitant]
     Indication: HERPES ZOSTER
     Route: 061
  13. TYLENOL [Concomitant]
     Route: 048
  14. IMODIUM [Concomitant]
     Indication: DIARRHOEA
     Route: 048
  15. NITROSTAT [Concomitant]
     Indication: CHEST PAIN
     Route: 060
  16. METHADONE HYDROCHLORIDE [Concomitant]
     Route: 065
  17. CALCIUM [Concomitant]
     Route: 048
  18. HYDRALAZINE [Concomitant]
     Route: 065
  19. VELCADE [Suspect]
     Route: 051
     Dates: end: 20101231
  20. ULTRAM [Concomitant]
     Indication: PAIN
     Route: 048
  21. GABAPENTIN [Concomitant]
     Route: 048
  22. LASIX [Concomitant]
     Route: 065
  23. BACTRIM [Concomitant]
     Dosage: 400-80 MG
     Route: 048
  24. IMDUR [Concomitant]
     Route: 048
  25. TESSALON [Concomitant]
     Indication: COUGH
     Route: 048
  26. HYDROCHLOROTHIAZIDE [Concomitant]
     Route: 065

REACTIONS (8)
  - URINARY RETENTION [None]
  - BLOOD PRESSURE SYSTOLIC DECREASED [None]
  - NEUROPATHY PERIPHERAL [None]
  - RENAL FAILURE ACUTE [None]
  - CHEST PAIN [None]
  - HERPES ZOSTER [None]
  - SYNCOPE [None]
  - HYPOAESTHESIA [None]
